FAERS Safety Report 7148034-0 (Version None)
Quarter: 2010Q4

REPORT INFORMATION
  Report Type: 
  Country: None (occurrence: None)
  Receive Date: 20101209
  Receipt Date: 20101202
  Transmission Date: 20110411
  Serious: Yes (Hospitalization)
  Sender: FDA-Public Use
  Company Number: IT-JNJFOC-20101201368

PATIENT
  Sex: Male

DRUGS (7)
  1. LEVOXACIN [Suspect]
     Indication: BRONCHOPNEUMONIA
     Route: 048
  2. METFORMIN HYDROCHLORIDE [Concomitant]
     Route: 065
  3. TICLOPIDINE HCL [Concomitant]
     Route: 065
  4. RYTHMOL [Concomitant]
     Route: 065
  5. SPIRIVA [Concomitant]
     Route: 065
  6. SERETIDE [Concomitant]
     Route: 065
  7. COAPROVEL [Concomitant]
     Route: 065

REACTIONS (1)
  - ATRIAL FIBRILLATION [None]
